FAERS Safety Report 10742162 (Version 1)
Quarter: 2015Q1

REPORT INFORMATION
  Report Type: Spontaneous
  Country: US (occurrence: US)
  Receive Date: 20150127
  Receipt Date: 20150127
  Transmission Date: 20150721
  Serious: Yes (Other)
  Sender: FDA-Public Use
  Company Number: US-SHIRE-US201500609

PATIENT
  Sex: Female
  Weight: 56.69 kg

DRUGS (1)
  1. LIALDA [Suspect]
     Active Substance: MESALAMINE
     Indication: COLITIS ULCERATIVE
     Dosage: 2.4 G (TWO TABLETS), 1X/DAY:QD (WITH BREAKFAST)
     Route: 048

REACTIONS (16)
  - Frequent bowel movements [Not Recovered/Not Resolved]
  - Feeling guilty [Not Recovered/Not Resolved]
  - Crying [Not Recovered/Not Resolved]
  - Personality change [Not Recovered/Not Resolved]
  - Feeling of despair [Not Recovered/Not Resolved]
  - Diarrhoea [Not Recovered/Not Resolved]
  - Suicidal ideation [Not Recovered/Not Resolved]
  - Pain [Not Recovered/Not Resolved]
  - Colitis [Unknown]
  - Muscle spasms [Not Recovered/Not Resolved]
  - Emotional disorder [Not Recovered/Not Resolved]
  - Abdominal discomfort [Not Recovered/Not Resolved]
  - Dyspepsia [Not Recovered/Not Resolved]
  - Depressed mood [Not Recovered/Not Resolved]
  - Psychiatric symptom [Not Recovered/Not Resolved]
  - Anger [Not Recovered/Not Resolved]
